FAERS Safety Report 4438001-X (Version None)
Quarter: 2004Q3

REPORT INFORMATION
  Report Type: 
  Country: None (occurrence: None)
  Receive Date: 20040831
  Receipt Date: 20040504
  Transmission Date: 20050211
  Serious: No
  Sender: FDA-Public Use
  Company Number: US-GLAXOSMITHKLINE-A0509452A

PATIENT

DRUGS (2)
  1. WELLBUTRIN XL [Suspect]
     Indication: ILL-DEFINED DISORDER
     Dosage: 300MG PER DAY
     Route: 048
  2. PAXIL [Concomitant]

REACTIONS (3)
  - HERPES SIMPLEX [None]
  - NASAL OEDEMA [None]
  - OEDEMA MOUTH [None]
